FAERS Safety Report 10237620 (Version 3)
Quarter: 2014Q3

REPORT INFORMATION
  Report Type: Spontaneous
  Country: PT (occurrence: PT)
  Receive Date: 20140616
  Receipt Date: 20140701
  Transmission Date: 20150326
  Serious: Yes (Other)
  Sender: FDA-Public Use
  Company Number: PT-ROCHE-1378120

PATIENT
  Age: 37 Year
  Sex: Female

DRUGS (6)
  1. PANTOPRAZOLE [Concomitant]
     Active Substance: PANTOPRAZOLE SODIUM
  2. FLUTICASONE PROPIONATE. [Concomitant]
     Active Substance: FLUTICASONE PROPIONATE
  3. SALBUTAMOL [Concomitant]
     Active Substance: ALBUTEROL
  4. LEVOCETIRIZINE [Concomitant]
     Active Substance: LEVOCETIRIZINE
  5. SINGULAIR [Concomitant]
     Active Substance: MONTELUKAST SODIUM
  6. XOLAIR [Suspect]
     Active Substance: OMALIZUMAB
     Indication: ASTHMA
     Route: 058
     Dates: start: 20140108

REACTIONS (6)
  - Hypokinesia [Recovered/Resolved]
  - Dizziness [Recovered/Resolved]
  - Back pain [Unknown]
  - Fibromyalgia [Unknown]
  - Autoimmune disorder [Unknown]
  - Injection site reaction [Recovered/Resolved]
